FAERS Safety Report 13132907 (Version 1)
Quarter: 2017Q1

REPORT INFORMATION
  Report Type: Spontaneous
  Country: US (occurrence: US)
  Receive Date: 20170119
  Receipt Date: 20170119
  Transmission Date: 20170428
  Serious: Yes (Other)
  Sender: FDA-Public Use
  Company Number: None

PATIENT
  Age: 41 Year
  Sex: Female
  Weight: 89.1 kg

DRUGS (6)
  1. CHLORPHENIRAMINE. [Suspect]
     Active Substance: CHLORPHENIRAMINE
     Indication: NASAL CONGESTION
     Dosage: ?          QUANTITY:1 TABLET(S);?
     Route: 048
     Dates: start: 20170116, end: 20170118
  2. TEGRETOL [Concomitant]
     Active Substance: CARBAMAZEPINE
  3. VITAMIN D3 [Concomitant]
     Active Substance: CHOLECALCIFEROL
  4. ATIVAN [Concomitant]
     Active Substance: LORAZEPAM
  5. MULTIVITAMIN [Concomitant]
     Active Substance: VITAMINS
  6. WELLBUTRIN [Concomitant]
     Active Substance: BUPROPION HYDROCHLORIDE

REACTIONS (4)
  - Depression [None]
  - Hallucination, auditory [None]
  - Nervousness [None]
  - Somnolence [None]

NARRATIVE: CASE EVENT DATE: 20170117
